FAERS Safety Report 6782805-5 (Version None)
Quarter: 2010Q2

REPORT INFORMATION
  Report Type: 
  Country: None (occurrence: None)
  Receive Date: 20100616
  Receipt Date: 20100531
  Transmission Date: 20101027
  Serious: Yes (Other)
  Sender: FDA-Public Use
  Company Number: IPC201006-000162

PATIENT
  Age: 55 Year
  Sex: Female

DRUGS (6)
  1. ATENOLOL [Suspect]
     Indication: DRUG USE FOR UNKNOWN INDICATION
     Dosage: 50 MG, 1 IN 1 D, ORAL
     Route: 048
     Dates: end: 20100529
  2. ATENOLOL [Suspect]
     Indication: DRUG USE FOR UNKNOWN INDICATION
     Dosage: 50 MG, 1 IN 1 D, ORAL
     Route: 048
     Dates: start: 20100530
  3. DICLOFENAC [Concomitant]
  4. ATORVASTATIN [Concomitant]
  5. FOLIC ACID [Concomitant]
  6. ACETYLSALICYCYLIC ACID [Concomitant]

REACTIONS (7)
  - HEADACHE [None]
  - MALAISE [None]
  - NAUSEA [None]
  - PARAESTHESIA [None]
  - PRODUCT QUALITY ISSUE [None]
  - TEARFULNESS [None]
  - TREMOR [None]
